FAERS Safety Report 24719062 (Version 2)
Quarter: 2025Q4

REPORT INFORMATION
  Report Type: Spontaneous
  Country: US (occurrence: US)
  Receive Date: 20241210
  Receipt Date: 20251210
  Transmission Date: 20260118
  Serious: No
  Sender: BIOGEN
  Company Number: US-BIOGEN-2024BI01293058

PATIENT
  Age: 50 Year
  Sex: Female

DRUGS (5)
  1. SPINRAZA [Suspect]
     Active Substance: NUSINERSEN
     Indication: Spinal muscular atrophy
     Dosage: DOSAGE TEXT:LOADING DOSE
  2. SPINRAZA [Suspect]
     Active Substance: NUSINERSEN
     Dosage: DOSAGE TEXT:LOADING DOSE
  3. SPINRAZA [Suspect]
     Active Substance: NUSINERSEN
     Dosage: DOSAGE TEXT:LOADING DOSE
  4. SPINRAZA [Suspect]
     Active Substance: NUSINERSEN
     Dosage: DOSAGE TEXT:LOADING DOSE
  5. SPINRAZA [Suspect]
     Active Substance: NUSINERSEN
     Dosage: DOSAGE TEXT:MAINTENANCE DOSE

REACTIONS (1)
  - Urine protein/creatinine ratio increased [Unknown]

NARRATIVE: CASE EVENT DATE: 20241202
